FAERS Safety Report 11448737 (Version 1)
Quarter: 2015Q3

REPORT INFORMATION
  Report Type: Spontaneous
  Country: US (occurrence: US)
  Receive Date: 20150902
  Receipt Date: 20150902
  Transmission Date: 20151125
  Serious: No
  Sender: FDA-Public Use
  Company Number: US-PFIZER INC-2015282201

PATIENT
  Age: 33 Year
  Sex: Male
  Weight: 64 kg

DRUGS (1)
  1. ADVIL [Suspect]
     Active Substance: IBUPROFEN
     Indication: HEADACHE
     Dosage: 2 DF, (AN HOUR LATER TOOK ANOTHER TWO ADVIL 200MG)
     Dates: start: 20150818, end: 20150820

REACTIONS (4)
  - Paraesthesia [Not Recovered/Not Resolved]
  - Hypoaesthesia [Not Recovered/Not Resolved]
  - Product use issue [Unknown]
  - Anxiety [Unknown]

NARRATIVE: CASE EVENT DATE: 20150818
